FAERS Safety Report 11964829 (Version 1)
Quarter: 2016Q1

REPORT INFORMATION
  Report Type: Spontaneous
  Country: US (occurrence: US)
  Receive Date: 20160127
  Receipt Date: 20160127
  Transmission Date: 20160526
  Serious: No
  Sender: FDA-Public Use
  Company Number: US-009507513-1601USA009390

PATIENT
  Age: 24 Year
  Sex: Female
  Weight: 44.44 kg

DRUGS (1)
  1. NEXPLANON [Suspect]
     Active Substance: ETONOGESTREL
     Indication: CONTRACEPTION
     Dosage: UNKNOWN, EVERY 3 YEARS
     Route: 059
     Dates: start: 20130419

REACTIONS (3)
  - Irritability [Unknown]
  - Pelvic pain [Unknown]
  - Metrorrhagia [Unknown]

NARRATIVE: CASE EVENT DATE: 201601
